FAERS Safety Report 4338653-9 (Version None)
Quarter: 2004Q2

REPORT INFORMATION
  Report Type: 
  Country: None (occurrence: None)
  Receive Date: 20040414
  Receipt Date: 20040330
  Transmission Date: 20050107
  Serious: Yes (Other)
  Sender: FDA-Public Use
  Company Number: PHBS2004CA04395

PATIENT
  Age: 76 Year
  Sex: Female
  Weight: 69 kg

DRUGS (8)
  1. AREDIA [Suspect]
     Indication: HYPERCALCAEMIA OF MALIGNANCY
     Dosage: 60 MG/D
     Dates: start: 20040321, end: 20040321
  2. DIURETICS [Concomitant]
     Route: 065
  3. VASOTEC [Concomitant]
     Route: 065
  4. MORPHINE [Concomitant]
     Route: 058
  5. INSULIN [Concomitant]
     Route: 065
  6. LANOXIN [Concomitant]
     Dosage: UNK, QD
     Route: 065
  7. RYTHMOL [Concomitant]
     Dosage: 150 MG, BID
     Route: 065
  8. CEFOTAN [Concomitant]
     Dosage: 1 G/D

REACTIONS (5)
  - BLOOD CREATININE INCREASED [None]
  - HYPERKALAEMIA [None]
  - HYPERTHERMIA [None]
  - KETOACIDOSIS [None]
  - RENAL FAILURE ACUTE [None]
